FAERS Safety Report 4633455-8 (Version None)
Quarter: 2005Q2

REPORT INFORMATION
  Report Type: 
  Country: None (occurrence: None)
  Receive Date: 20050412
  Receipt Date: 20050222
  Transmission Date: 20051028
  Serious: No
  Sender: FDA-Public Use
  Company Number: 10631

PATIENT

DRUGS (10)
  1. METHOTREXATE [Suspect]
     Indication: BURKITT'S LYMPHOMA
     Route: 042
  2. DEXAMETHASONE [Suspect]
     Indication: BURKITT'S LYMPHOMA
     Route: 048
  3. VINCRISTINE [Suspect]
     Indication: BURKITT'S LYMPHOMA
     Dosage: 1.5 MG/M2 OTH
     Route: 042
  4. CYTARABINE [Suspect]
     Indication: BURKITT'S LYMPHOMA
     Route: 037
  5. ETOPOSIDE [Suspect]
     Indication: BURKITT'S LYMPHOMA
     Dosage: 100 MG/M2 OTH
     Route: 042
  6. DOXORUBICIN HCL [Suspect]
     Indication: BURKITT'S LYMPHOMA
     Dosage: 25 MG/M2 OTH
     Route: 042
  7. CYCLOPHOSPHAMIDE [Suspect]
     Indication: BURKITT'S LYMPHOMA
     Dosage: 200 MG/M2 OTH
     Route: 042
  8. PREDNISOLONE [Suspect]
     Indication: BURKITT'S LYMPHOMA
     Dosage: 10 MG/M2 OTH
     Route: 037
  9. ISOFAMIDE [Suspect]
     Indication: BURKITT'S LYMPHOMA
     Dosage: 800 MG/M2 OTH
     Route: 042
  10. LEUCOVORIN CALCIUM [Concomitant]

REACTIONS (1)
  - BURKITT'S LYMPHOMA RECURRENT [None]
